FAERS Safety Report 14852841 (Version 1)
Quarter: 2018Q2

REPORT INFORMATION
  Report Type: Spontaneous
  Country: TR (occurrence: TR)
  Receive Date: 20180507
  Receipt Date: 20180507
  Transmission Date: 20180711
  Serious: Yes (Death, Hospitalization)
  Sender: FDA-Public Use
  Company Number: TR-DEPOMED, INC.-TR-2018DEP000969

PATIENT
  Age: 40 Year
  Sex: Female
  Weight: 59 kg

DRUGS (1)
  1. DICLOFENAC POTASSIUM. [Suspect]
     Active Substance: DICLOFENAC POTASSIUM
     Indication: OTITIS MEDIA
     Dosage: UNK
     Route: 030

REACTIONS (2)
  - Rhabdomyolysis [Fatal]
  - Embolia cutis medicamentosa [Fatal]
